FAERS Safety Report 23519696 (Version 1)
Quarter: 2024Q1

REPORT INFORMATION
  Report Type: Other
  Country: GR (occurrence: GR)
  Receive Date: 20240213
  Receipt Date: 20240213
  Transmission Date: 20240410
  Serious: Yes (Hospitalization)
  Sender: FDA-Public Use
  Company Number: GR-BoehringerIngelheim-2024-BI-006511

PATIENT
  Age: 70 Year
  Sex: Female

DRUGS (1)
  1. ALTEPLASE [Suspect]
     Active Substance: ALTEPLASE
     Indication: Cerebral ischaemia
     Route: 042

REACTIONS (6)
  - Acute pulmonary oedema [Recovered/Resolved]
  - Atrial thrombosis [Recovered/Resolved]
  - Pyrexia [Recovered/Resolved]
  - Respiratory tract infection bacterial [Recovered/Resolved]
  - Arteriosclerosis [Recovered/Resolved]
  - Subclavian steal syndrome [Recovered/Resolved]
